FAERS Safety Report 16753637 (Version 2)
Quarter: 2019Q3

REPORT INFORMATION
  Report Type: Spontaneous
  Country: US (occurrence: US)
  Receive Date: 20190829
  Receipt Date: 20190927
  Transmission Date: 20191005
  Serious: No
  Sender: FDA-Public Use
  Company Number: US-009507513-1908USA000149

PATIENT
  Age: 35 Year
  Sex: Female

DRUGS (1)
  1. NEXPLANON [Suspect]
     Active Substance: ETONOGESTREL
     Dosage: 1 ROD EVERY 3 YEARS
     Route: 059
     Dates: start: 201905, end: 2019

REACTIONS (6)
  - Rash generalised [Recovering/Resolving]
  - Complication of device removal [Recovered/Resolved]
  - Weight increased [Not Recovered/Not Resolved]
  - Device deployment issue [Recovered/Resolved]
  - Urticaria [Not Recovered/Not Resolved]
  - Complication associated with device [Recovered/Resolved]

NARRATIVE: CASE EVENT DATE: 2019
